FAERS Safety Report 5096958-0 (Version None)
Quarter: 2006Q3

REPORT INFORMATION
  Report Type: 
  Country: None (occurrence: None)
  Receive Date: 20060831
  Receipt Date: 20060831
  Transmission Date: 20061208
  Serious: Yes (Hospitalization)
  Sender: FDA-Public Use
  Company Number: None

PATIENT
  Age: 59 Year
  Sex: Male
  Weight: 70.7611 kg

DRUGS (4)
  1. HYDROXYUREA [Suspect]
     Indication: CHRONIC MYELOID LEUKAEMIA
     Dosage: 500 MG
     Dates: start: 20060815, end: 20060830
  2. VERDENAFIL HCL [Concomitant]
  3. HYDROXYZINE PAMOATE [Concomitant]
  4. TRAZODONE HCL [Concomitant]

REACTIONS (9)
  - CHEST PAIN [None]
  - CONTUSION [None]
  - EAR DISORDER [None]
  - EAR HAEMORRHAGE [None]
  - EPISTAXIS [None]
  - NASAL DISORDER [None]
  - NIGHT SWEATS [None]
  - PNEUMONIA [None]
  - SINUS HEADACHE [None]
